FAERS Safety Report 26214045 (Version 1)
Quarter: 2025Q4

REPORT INFORMATION
  Report Type: Spontaneous
  Country: US (occurrence: US)
  Receive Date: 20251230
  Receipt Date: 20251230
  Transmission Date: 20260118
  Serious: No
  Sender: MYLAN
  Company Number: US-MYLANLABS-2025M1110369

PATIENT
  Sex: Female
  Weight: 56.7 kg

DRUGS (5)
  1. LYRICA [Suspect]
     Active Substance: PREGABALIN
     Indication: Neuralgia
     Dosage: 75 MILLIGRAM, QD (ONCE A DAY)
     Route: 061
  2. BENLYSTA [Concomitant]
     Active Substance: BELIMUMAB
     Indication: Rheumatoid arthritis
     Dosage: UNK
  3. BENLYSTA [Concomitant]
     Active Substance: BELIMUMAB
     Indication: Mixed connective tissue disease
  4. BENLYSTA [Concomitant]
     Active Substance: BELIMUMAB
     Indication: Sjogren^s syndrome
  5. BENLYSTA [Concomitant]
     Active Substance: BELIMUMAB
     Indication: Raynaud^s phenomenon

REACTIONS (1)
  - Product dose omission issue [Unknown]
